FAERS Safety Report 20535806 (Version 1)
Quarter: 2022Q1

REPORT INFORMATION
  Report Type: Spontaneous
  Country: CA (occurrence: CA)
  Receive Date: 20220302
  Receipt Date: 20220302
  Transmission Date: 20220423
  Serious: Yes (Life-Threatening, Other)
  Sender: FDA-Public Use
  Company Number: CA-JNJFOC-20211137943

PATIENT
  Age: 20 Year
  Sex: Male
  Weight: 84 kg

DRUGS (57)
  1. DARATUMUMAB [Suspect]
     Active Substance: DARATUMUMAB
     Indication: Acute lymphocytic leukaemia recurrent
     Route: 042
  2. CYCLOPHOSPHAMIDE [Suspect]
     Active Substance: CYCLOPHOSPHAMIDE
     Indication: Acute lymphocytic leukaemia recurrent
     Route: 048
  3. DOXORUBICIN HYDROCHLORIDE [Suspect]
     Active Substance: DOXORUBICIN HYDROCHLORIDE
     Indication: Acute lymphocytic leukaemia recurrent
     Route: 065
  4. VENETOCLAX [Suspect]
     Active Substance: VENETOCLAX
     Indication: Acute lymphocytic leukaemia recurrent
     Route: 048
  5. VINCRISTINE SULFATE [Suspect]
     Active Substance: VINCRISTINE SULFATE
     Indication: Acute lymphocytic leukaemia recurrent
     Route: 065
  6. ALTEPLASE [Concomitant]
     Active Substance: ALTEPLASE
     Route: 042
  7. AMLODIPINE [Concomitant]
     Active Substance: AMLODIPINE BESYLATE
     Route: 065
  8. CAFFEINE [Concomitant]
     Active Substance: CAFFEINE
     Route: 065
  9. CAFFEINE [Concomitant]
     Active Substance: CAFFEINE
     Route: 065
  10. CHOLECALCIFEROL [Concomitant]
     Active Substance: CHOLECALCIFEROL
     Route: 065
  11. DEXAMETHASONE [Concomitant]
     Active Substance: DEXAMETHASONE
     Route: 014
  12. DIMENHYDRINATE [Concomitant]
     Active Substance: DIMENHYDRINATE
     Route: 042
  13. DIPHENHYDRAMINE [Concomitant]
     Active Substance: DIPHENHYDRAMINE
     Route: 065
  14. FUROSEMIDE [Concomitant]
     Active Substance: FUROSEMIDE
     Route: 065
  15. FUROSEMIDE [Concomitant]
     Active Substance: FUROSEMIDE
     Route: 065
  16. GABAPENTIN [Concomitant]
     Active Substance: GABAPENTIN
     Route: 065
  17. GABAPENTIN [Concomitant]
     Active Substance: GABAPENTIN
     Route: 065
  18. HUMALOG [Concomitant]
     Active Substance: INSULIN LISPRO
     Route: 065
  19. HUMALOG [Concomitant]
     Active Substance: INSULIN LISPRO
     Route: 065
  20. INSULIN GLARGINE [Concomitant]
     Active Substance: INSULIN GLARGINE
     Route: 058
  21. INSULIN GLARGINE [Concomitant]
     Active Substance: INSULIN GLARGINE
     Route: 065
  22. LANSOPRAZOLE [Concomitant]
     Active Substance: LANSOPRAZOLE
     Route: 065
  23. LANSOPRAZOLE [Concomitant]
     Active Substance: LANSOPRAZOLE
     Route: 065
  24. LEVOFLOXACIN [Concomitant]
     Active Substance: LEVOFLOXACIN
     Route: 065
  25. LEVOFLOXACIN [Concomitant]
     Active Substance: LEVOFLOXACIN
     Route: 065
  26. MEROPENEM [Concomitant]
     Active Substance: MEROPENEM
     Route: 042
  27. MEROPENEM [Concomitant]
     Active Substance: MEROPENEM
     Route: 065
  28. MESNA [Concomitant]
     Active Substance: MESNA
     Route: 065
  29. MESNA [Concomitant]
     Active Substance: MESNA
     Route: 065
  30. MONTELUKAST [Concomitant]
     Active Substance: MONTELUKAST SODIUM
     Route: 065
  31. MONTELUKAST [Concomitant]
     Active Substance: MONTELUKAST SODIUM
     Route: 065
  32. MYCAMINE [Concomitant]
     Active Substance: MICAFUNGIN SODIUM
     Route: 042
  33. MYCAMINE [Concomitant]
     Active Substance: MICAFUNGIN SODIUM
     Route: 065
  34. NIFEDIPINE [Concomitant]
     Active Substance: NIFEDIPINE
     Route: 065
  35. NIFEDIPINE [Concomitant]
     Active Substance: NIFEDIPINE
     Route: 065
  36. OLANZAPINE [Concomitant]
     Active Substance: OLANZAPINE
     Route: 065
  37. OLANZAPINE [Concomitant]
     Active Substance: OLANZAPINE
     Route: 065
  38. ONDANSETRON [Concomitant]
     Active Substance: ONDANSETRON
     Route: 065
  39. ONDANSETRON [Concomitant]
     Active Substance: ONDANSETRON
     Route: 065
  40. PANCRELIPASE [Concomitant]
     Active Substance: PANCRELIPASE
     Route: 065
  41. PANCRELIPASE [Concomitant]
     Active Substance: PANCRELIPASE
     Route: 065
  42. PIPERACILLIN AND TAZOBACTAM [Concomitant]
     Active Substance: PIPERACILLIN SODIUM\TAZOBACTAM SODIUM
     Route: 065
  43. PIPERACILLIN AND TAZOBACTAM [Concomitant]
     Active Substance: PIPERACILLIN SODIUM\TAZOBACTAM SODIUM
     Route: 065
  44. POLYETHYLENE GLYCOLS [Concomitant]
     Active Substance: POLYETHYLENE GLYCOLS
     Route: 065
  45. POLYETHYLENE GLYCOLS [Concomitant]
     Active Substance: POLYETHYLENE GLYCOLS
     Route: 065
  46. ALBUTEROL [Concomitant]
     Active Substance: ALBUTEROL
     Route: 042
  47. ALBUTEROL [Concomitant]
     Active Substance: ALBUTEROL
     Route: 065
  48. TOBRAMYCIN [Concomitant]
     Active Substance: TOBRAMYCIN
     Route: 065
  49. TOBRAMYCIN [Concomitant]
     Active Substance: TOBRAMYCIN
     Route: 065
  50. SULFAMETHOXAZOLE\TRIMETHOPRIM [Concomitant]
     Active Substance: SULFAMETHOXAZOLE\TRIMETHOPRIM
     Route: 065
  51. SULFAMETHOXAZOLE\TRIMETHOPRIM [Concomitant]
     Active Substance: SULFAMETHOXAZOLE\TRIMETHOPRIM
     Route: 065
  52. URSODIOL [Concomitant]
     Active Substance: URSODIOL
     Route: 065
  53. URSODIOL [Concomitant]
     Active Substance: URSODIOL
     Route: 065
  54. VALACYCLOVIR [Concomitant]
     Active Substance: VALACYCLOVIR HYDROCHLORIDE
     Route: 065
  55. VALACYCLOVIR [Concomitant]
     Active Substance: VALACYCLOVIR HYDROCHLORIDE
     Route: 065
  56. VANCOMYCIN [Concomitant]
     Active Substance: VANCOMYCIN
     Route: 065
  57. VANCOMYCIN [Concomitant]
     Active Substance: VANCOMYCIN
     Route: 065

REACTIONS (3)
  - Aplastic anaemia [Recovered/Resolved]
  - Off label use [Unknown]
  - Product use in unapproved indication [Unknown]
